FAERS Safety Report 6227541-9 (Version None)
Quarter: 2009Q2

REPORT INFORMATION
  Report Type: 
  Country: None (occurrence: None)
  Receive Date: 20090610
  Receipt Date: 20090610
  Transmission Date: 20091009
  Serious: Yes (Life-Threatening, Disabling)
  Sender: FDA-Public Use
  Company Number: None

PATIENT
  Age: 82 Year
  Sex: Female
  Weight: 54 kg

DRUGS (6)
  1. WARFARIN SODIUM [Suspect]
     Dosage: 2.5 MG QD PO
     Route: 048
  2. WARFARIN SODIUM [Suspect]
     Dosage: 5 MG QD PO
     Route: 048
  3. VERAMAMIL [Concomitant]
  4. ENALAPRIL [Concomitant]
  5. SPRIVA INHALER [Concomitant]
  6. SINGULAIR [Concomitant]

REACTIONS (1)
  - RETROPERITONEAL HAEMATOMA [None]
